FAERS Safety Report 16304437 (Version 2)
Quarter: 2019Q2

REPORT INFORMATION
  Report Type: Spontaneous
  Country: CH (occurrence: CH)
  Receive Date: 20190513
  Receipt Date: 20190528
  Transmission Date: 20190711
  Serious: Yes (Other)
  Sender: FDA-Public Use
  Company Number: CH-009507513-1905CHE000473

PATIENT
  Age: 66 Year
  Sex: Male

DRUGS (19)
  1. VANCOMYCIN [Concomitant]
     Active Substance: VANCOMYCIN
     Dosage: 1 GRAM, BID
     Dates: start: 20151030, end: 201511
  2. ERTAPENEM SODIUM [Concomitant]
     Active Substance: ERTAPENEM SODIUM
     Dosage: 1 GRAM, QD
     Route: 042
     Dates: start: 20151023, end: 20151030
  3. NEXIUM [Concomitant]
     Active Substance: ESOMEPRAZOLE MAGNESIUM
     Dosage: UNK
  4. CANCIDAS [Concomitant]
     Active Substance: CASPOFUNGIN ACETATE
     Dosage: 70 MILLIGRAM, QD
     Dates: start: 20151030, end: 20151030
  5. CALCIPARINE [Concomitant]
     Active Substance: HEPARIN CALCIUM
     Dosage: UNK
  6. ACCUPAQUE [Suspect]
     Active Substance: IOHEXOL
     Dates: start: 20151119, end: 20151119
  7. MEROPENEM. [Concomitant]
     Active Substance: MEROPENEM
     Dates: start: 20150924, end: 201509
  8. PROGRAF [Concomitant]
     Active Substance: TACROLIMUS\TACROLIMUS ANHYDROUS
     Dosage: UNK
     Dates: start: 201510
  9. TIENAM [Suspect]
     Active Substance: CILASTATIN SODIUM\IMIPENEM
     Dosage: 0.5 GRAM, 4 PER DAY
     Route: 041
     Dates: start: 20151030, end: 20151111
  10. CANCIDAS [Concomitant]
     Active Substance: CASPOFUNGIN ACETATE
     Dosage: 50 MILLIGRAM, QD
     Dates: start: 20151031
  11. CLAMOXYL [Concomitant]
     Dosage: UNK
     Dates: start: 20151120
  12. INSULATARD HM [Concomitant]
     Active Substance: INSULIN HUMAN
     Dosage: UNK
  13. TIENAM [Suspect]
     Active Substance: CILASTATIN SODIUM\IMIPENEM
     Dosage: 0.5 GRAM, QID
     Route: 041
     Dates: start: 20151119, end: 20151120
  14. REMERON [Suspect]
     Active Substance: MIRTAZAPINE
     Route: 048
     Dates: start: 20151119, end: 20151119
  15. PIPERACILLIN AND TAZOBACTAM [Concomitant]
     Active Substance: PIPERACILLIN SODIUM\TAZOBACTAM SODIUM
     Dosage: 13.5 GRAM, QD
     Route: 042
     Dates: start: 20151111, end: 20151117
  16. CLAMOXYL [Concomitant]
     Dosage: 2 GRAM, QID
     Dates: start: 20151117, end: 20151119
  17. VANCOMYCIN [Concomitant]
     Active Substance: VANCOMYCIN
     Dosage: UNK
     Dates: start: 20150924, end: 201509
  18. CANCIDAS [Concomitant]
     Active Substance: CASPOFUNGIN ACETATE
     Dosage: UNK
     Dates: start: 20150924, end: 201509
  19. PREDNISONE. [Concomitant]
     Active Substance: PREDNISONE
     Dosage: UNK

REACTIONS (1)
  - Erythema [Recovered/Resolved]

NARRATIVE: CASE EVENT DATE: 20151120
